FAERS Safety Report 4408579-0 (Version None)
Quarter: 2004Q3

REPORT INFORMATION
  Report Type: 
  Country: None (occurrence: None)
  Receive Date: 20040726
  Receipt Date: 20040726
  Transmission Date: 20050211
  Serious: No
  Sender: FDA-Public Use
  Company Number: None

PATIENT
  Sex: Male

DRUGS (1)
  1. PAXIL [Suspect]

REACTIONS (4)
  - ABNORMAL BEHAVIOUR [None]
  - DRUG INEFFECTIVE [None]
  - OBSESSIVE-COMPULSIVE DISORDER [None]
  - PHARMACEUTICAL PRODUCT COMPLAINT [None]
